FAERS Safety Report 7138119-7 (Version None)
Quarter: 2010Q4

REPORT INFORMATION
  Report Type: 
  Country: None (occurrence: None)
  Receive Date: 20101103
  Receipt Date: 20100312
  Transmission Date: 20110411
  Serious: Yes (Other)
  Sender: FDA-Public Use
  Company Number: US-WYE-H14111210

PATIENT
  Age: 66 Year
  Sex: Male
  Weight: 80.81 kg

DRUGS (2)
  1. EFFEXOR XR [Suspect]
     Indication: DEPRESSION
     Dosage: 150 MG 1X PER 1 DAY, ORAL, 75 MG 1X PER 1 DAY, ORAL
     Route: 048
     Dates: start: 20100302, end: 20100101
  2. EFFEXOR XR [Suspect]
     Indication: DEPRESSION
     Dosage: 150 MG 1X PER 1 DAY, ORAL, 75 MG 1X PER 1 DAY, ORAL
     Route: 048
     Dates: start: 20100101

REACTIONS (1)
  - BLOOD PRESSURE INCREASED [None]
